FAERS Safety Report 13165444 (Version 1)
Quarter: 2017Q1

REPORT INFORMATION
  Report Type: Spontaneous
  Country: BR (occurrence: BR)
  Receive Date: 20170131
  Receipt Date: 20170131
  Transmission Date: 20170428
  Serious: Yes (Other)
  Sender: FDA-Public Use
  Company Number: BR-SCIEGEN PHARMACEUTICALS INC-2017SCILIT00012

PATIENT
  Age: 52 Year
  Sex: Male

DRUGS (1)
  1. ATORVASTATIN CALCIUM. [Suspect]
     Active Substance: ATORVASTATIN CALCIUM
     Indication: DYSLIPIDAEMIA
     Dosage: 10 MG, QD
     Route: 065

REACTIONS (4)
  - Oscillopsia [Unknown]
  - Blood creatine phosphokinase increased [Unknown]
  - Hyperglycaemia [Unknown]
  - Cerebellar ataxia [Unknown]
